FAERS Safety Report 4975343-3 (Version None)
Quarter: 2006Q2

REPORT INFORMATION
  Report Type: 
  Country: None (occurrence: None)
  Receive Date: 20060411
  Receipt Date: 20060327
  Transmission Date: 20061013
  Serious: Yes (Other)
  Sender: FDA-Public Use
  Company Number: S06-GER-01324-01

PATIENT
  Age: 17 Year
  Sex: Male
  Weight: 56.6 kg

DRUGS (2)
  1. CIPRALEX (ESCITALOPRAM) [Suspect]
     Indication: DEPRESSION
     Dosage: 5 MG QD PO
     Route: 048
     Dates: start: 20050301, end: 20050322
  2. CIPRALEX (ESCITALOPRAM) [Suspect]
     Indication: DEPRESSION
     Dosage: 10 MG DAILY PO
     Route: 048
     Dates: start: 20050323, end: 20051111

REACTIONS (1)
  - HALLUCINATION, OLFACTORY [None]
